FAERS Safety Report 13933881 (Version 3)
Quarter: 2018Q2

REPORT INFORMATION
  Report Type: Spontaneous
  Country: US (occurrence: US)
  Receive Date: 20170904
  Receipt Date: 20180424
  Transmission Date: 20180711
  Serious: Yes (Hospitalization)
  Sender: FDA-Public Use
  Company Number: US-DSJP-DSU-2017-134592

PATIENT

DRUGS (2)
  1. BRISTOL ANTISEPTIC [Suspect]
     Active Substance: CLOPAMIDE\DIHYDROERGOCRISTINE MESYLATE\RESERPINE
     Indication: PRODUCT USED FOR UNKNOWN INDICATION
     Dosage: UNK
  2. BENICAR [Suspect]
     Active Substance: OLMESARTAN MEDOXOMIL
     Indication: HYPERTENSION
     Dosage: 40 MG, QD
     Dates: start: 20081208, end: 20170620

REACTIONS (9)
  - Weight decreased [Recovered/Resolved]
  - Hiatus hernia [Not Recovered/Not Resolved]
  - Gastritis erosive [Unknown]
  - Small intestinal obstruction [Recovering/Resolving]
  - Vomiting [Recovered/Resolved]
  - Polyp [Recovered/Resolved]
  - Haemorrhoids [Not Recovered/Not Resolved]
  - Constipation [Unknown]
  - Diarrhoea [Recovered/Resolved]

NARRATIVE: CASE EVENT DATE: 20100312
